FAERS Safety Report 5644381-X (Version None)
Quarter: 2008Q1

REPORT INFORMATION
  Report Type: 
  Country: None (occurrence: None)
  Receive Date: 20080229
  Receipt Date: 20080228
  Transmission Date: 20080703
  Serious: Yes (Other)
  Sender: FDA-Public Use
  Company Number: FR-RB-000184-08

PATIENT
  Sex: Male

DRUGS (3)
  1. SUBUTEX [Suspect]
     Indication: DRUG USE FOR UNKNOWN INDICATION
     Route: 065
  2. SUBUTEX [Suspect]
     Dosage: 0.5 DF, ONCE.
     Route: 065
     Dates: start: 20080218, end: 20080218
  3. SUBUTEX [Suspect]
     Dosage: 1.5 DF, ONCE
     Route: 065
     Dates: start: 20080219

REACTIONS (3)
  - CANDIDIASIS [None]
  - INTERVERTEBRAL DISCITIS [None]
  - WITHDRAWAL SYNDROME [None]
